FAERS Safety Report 5370496-X (Version None)
Quarter: 2007Q2

REPORT INFORMATION
  Report Type: 
  Country: None (occurrence: None)
  Receive Date: 20070625
  Receipt Date: 20070625
  Transmission Date: 20071010
  Serious: Yes (Hospitalization)
  Sender: FDA-Public Use
  Company Number: None

PATIENT
  Age: 50 Year
  Sex: Male

DRUGS (4)
  1. BEVACIZUMAB 10 MG/KG [Suspect]
     Indication: GLIOBLASTOMA MULTIFORME
     Dosage: D1 + D15 OF EACH CYCLE
     Dates: start: 20070503, end: 20070621
  2. ETOPOSIDE 100 MG QD [Suspect]
     Dosage: 21 DAYS/OF 28 DAY CYCLE
     Dates: start: 20070503, end: 20070621
  3. DECADRON [Concomitant]
  4. ZANTAC [Concomitant]

REACTIONS (4)
  - GENERAL PHYSICAL HEALTH DETERIORATION [None]
  - MALIGNANT NEOPLASM PROGRESSION [None]
  - PULMONARY EMBOLISM [None]
  - THROMBOCYTOPENIA [None]
